FAERS Safety Report 7759527 (Version 2)
Quarter: 2013Q1

REPORT INFORMATION
  Report Type: Spontaneous
  Country: NL (occurrence: NL)
  Receive Date: 20110113
  Receipt Date: 20130319
  Transmission Date: 20140127
  Serious: Yes (Life-Threatening, Hospitalization)
  Sender: FDA-Public Use
  Company Number: NL-ROCHE-751709

PATIENT
  Age: 73 Year
  Sex: Female

DRUGS (3)
  1. CAPECITABINE [Suspect]
     Indication: COLORECTAL CANCER METASTATIC
     Dosage: FOR 14 DAYS AT A 3 WEEK INTERVAL
     Route: 048
  2. OXALIPLATIN [Concomitant]
     Indication: RECTAL CANCER METASTATIC
     Route: 065
  3. BEVACIZUMAB [Concomitant]
     Indication: RECTAL CANCER METASTATIC
     Route: 065

REACTIONS (6)
  - Dehydration [Unknown]
  - Mucosal inflammation [Unknown]
  - Neutropenia [Unknown]
  - Diarrhoea [Unknown]
  - Abdominal pain [Unknown]
  - Pyrexia [Unknown]
